FAERS Safety Report 6778913-5 (Version None)
Quarter: 2010Q2

REPORT INFORMATION
  Report Type: 
  Country: None (occurrence: None)
  Receive Date: 20100618
  Receipt Date: 20100609
  Transmission Date: 20101027
  Serious: Yes (Life-Threatening, Hospitalization)
  Sender: FDA-Public Use
  Company Number: JP-SANOFI-AVENTIS-2010SA013058

PATIENT
  Age: 81 Year
  Sex: Male
  Weight: 46 kg

DRUGS (24)
  1. PLAVIX [Suspect]
     Route: 048
     Dates: start: 20091118, end: 20091118
  2. PLAVIX [Suspect]
     Route: 048
     Dates: start: 20091118, end: 20091118
  3. PLAVIX [Suspect]
     Route: 048
     Dates: start: 20091119, end: 20091130
  4. PLAVIX [Suspect]
     Route: 048
     Dates: start: 20091119, end: 20091130
  5. WARFARIN [Suspect]
     Indication: ATRIAL FIBRILLATION
     Route: 048
     Dates: start: 20091126
  6. ASPIRIN [Concomitant]
     Route: 048
     Dates: start: 20091118
  7. ASPIRIN [Concomitant]
     Route: 048
     Dates: start: 20091118
  8. HEPARIN [Concomitant]
     Dosage: DOSE:10000 UNIT(S)
     Route: 041
     Dates: start: 20091118, end: 20091218
  9. HEPARIN [Concomitant]
     Dosage: DOSE:10000 UNIT(S)
     Route: 041
     Dates: start: 20091118, end: 20091218
  10. DOBUTAMINE HCL [Concomitant]
     Indication: CARDIAC FAILURE
     Dosage: GRADUAL DECREASE FROM 3MCG/KG
     Route: 042
     Dates: start: 20091118, end: 20091119
  11. INOVAN [Concomitant]
     Indication: CARDIAC FAILURE
     Dosage: GRADUAL DECREASE FROM 5MCG/KG
     Route: 042
     Dates: start: 20091118, end: 20091123
  12. GLYCERYL TRINITRATE [Concomitant]
     Indication: CARDIAC FAILURE
     Route: 042
     Dates: start: 20091120, end: 20091126
  13. ADETPHOS [Concomitant]
     Indication: CARDIAC FAILURE
     Route: 042
     Dates: start: 20091120, end: 20091120
  14. VASOLAN [Concomitant]
     Indication: CARDIAC FAILURE
     Route: 042
     Dates: start: 20091120, end: 20091120
  15. DIGOSIN [Concomitant]
     Indication: CARDIAC FAILURE
     Route: 042
     Dates: start: 20091120, end: 20091120
  16. LASIX [Concomitant]
     Indication: CARDIAC FAILURE
     Route: 042
     Dates: start: 20091121, end: 20091125
  17. LASIX [Concomitant]
     Route: 048
     Dates: start: 20091125
  18. CEFAZOLIN SODIUM [Concomitant]
     Indication: PNEUMONIA
     Route: 042
     Dates: start: 20091120, end: 20091123
  19. OMEPRAL [Concomitant]
     Route: 048
     Dates: start: 20091118
  20. CERNILTON [Concomitant]
     Dosage: 6 TABLETS
     Route: 048
  21. LENDORMIN [Concomitant]
     Route: 048
     Dates: start: 20091119
  22. MUCODYNE [Concomitant]
     Route: 048
     Dates: start: 20091125, end: 20091203
  23. ARTIST [Concomitant]
     Route: 048
     Dates: start: 20091127
  24. SOLU-MEDROL [Concomitant]
     Route: 042
     Dates: start: 20091130, end: 20091202

REACTIONS (2)
  - HEPATIC FUNCTION ABNORMAL [None]
  - PNEUMONIA [None]
